FAERS Safety Report 7308978 (Version 3)
Quarter: 2013Q1

REPORT INFORMATION
  Report Type: Spontaneous
  Country: JP (occurrence: JP)
  Receive Date: 20100309
  Receipt Date: 20130111
  Transmission Date: 20140127
  Serious: Yes (Death, Other)
  Sender: FDA-Public Use
  Company Number: JP-BAYER-201011064BYL

PATIENT
  Age: 75 Year
  Sex: Female

DRUGS (4)
  1. NEXAVAR [Suspect]
     Indication: RENAL CANCER
     Dosage: 400 MG, BID
     Route: 048
     Dates: start: 20100210, end: 20100226
  2. BUFFERIN [Concomitant]
     Dosage: 81 MG (DAILY DOSE)
     Route: 048
  3. LANIRAPID [Concomitant]
     Dosage: 0.1 MG (DAILY DOSE), , ORAL
     Route: 048
  4. NIFEDIPINE [Concomitant]
     Dosage: 40 MG (DAILY DOSE)
     Route: 048

REACTIONS (4)
  - Hyponatraemia [Fatal]
  - Hypoalbuminaemia [Fatal]
  - Thrombocytopenia [Fatal]
  - Hepatotoxicity [None]
